FAERS Safety Report 16410573 (Version 1)
Quarter: 2019Q2

REPORT INFORMATION
  Report Type: Spontaneous
  Country: ES (occurrence: ES)
  Receive Date: 20190610
  Receipt Date: 20190610
  Transmission Date: 20190711
  Serious: Yes (Life-Threatening, Hospitalization)
  Sender: FDA-Public Use
  Company Number: ES-PFIZER INC-2019242526

PATIENT
  Age: 3 Year
  Sex: Female

DRUGS (11)
  1. METHOTREXATE SODIUM. [Interacting]
     Active Substance: METHOTREXATE SODIUM
     Indication: STEM CELL TRANSPLANT
     Dosage: UNK (SHORT PATTERN 4 DOSES)
     Dates: start: 20160616, end: 201606
  2. CICLOSPORIN [Interacting]
     Active Substance: CYCLOSPORINE
     Indication: STEM CELL TRANSPLANT
     Dosage: UNK
     Route: 042
     Dates: start: 20160614, end: 20161014
  3. THYMOGLOBULIN [Interacting]
     Active Substance: LAPINE T-LYMPHOCYTE IMMUNE GLOBULIN
     Indication: BONE MARROW CONDITIONING REGIMEN
     Dosage: 2 MG/KG, 1X/DAY
     Route: 042
     Dates: start: 20160608, end: 20160610
  4. FLUDARABINE [Interacting]
     Active Substance: FLUDARABINE PHOSPHATE
     Indication: BONE MARROW CONDITIONING REGIMEN
     Dosage: 50 MG/M2, 1X/DAY
     Route: 042
     Dates: start: 20160608, end: 20160610
  5. CYTARABINE. [Suspect]
     Active Substance: CYTARABINE
     Indication: ACUTE MYELOID LEUKAEMIA
     Dosage: UNK (SHOP-LAM 2007)
     Route: 042
     Dates: start: 20160129, end: 201605
  6. BUSULFAN. [Interacting]
     Active Substance: BUSULFAN
     Indication: BONE MARROW CONDITIONING REGIMEN
     Dosage: 4.8 MG/KG, 1X/DAY
     Route: 042
     Dates: start: 20160608, end: 20160610
  7. MITOXANTRONE [Interacting]
     Active Substance: MITOXANTRONE HYDROCHLORIDE
     Indication: ACUTE MYELOID LEUKAEMIA
     Dosage: UNK (SHOP-LAM 2007)
     Route: 042
     Dates: start: 20160401, end: 201605
  8. IDARUBICIN HCL [Interacting]
     Active Substance: IDARUBICIN HYDROCHLORIDE
     Indication: ACUTE MYELOID LEUKAEMIA
     Dosage: UNK (SHOP-LAM 2007)
     Route: 042
     Dates: start: 20160201, end: 20160401
  9. ETOPOSIDE. [Interacting]
     Active Substance: ETOPOSIDE
     Indication: ACUTE MYELOID LEUKAEMIA
     Dosage: UNK (SHOP-LAM 2007)
     Route: 042
     Dates: start: 20160201, end: 20160401
  10. MYCOPHENOLATE MOFETIL. [Interacting]
     Active Substance: MYCOPHENOLATE MOFETIL
     Indication: STEM CELL TRANSPLANT
     Dosage: UNK
     Dates: start: 20160724, end: 201609
  11. ONCO TIOTEPA [Interacting]
     Active Substance: THIOTEPA
     Indication: BONE MARROW CONDITIONING REGIMEN
     Dosage: 5 MG/KG, 1X/DAY
     Route: 042
     Dates: start: 20160608, end: 20160609

REACTIONS (2)
  - Post transplant lymphoproliferative disorder [Recovered/Resolved with Sequelae]
  - Drug interaction [Recovered/Resolved with Sequelae]

NARRATIVE: CASE EVENT DATE: 20160923
